FAERS Safety Report 18900680 (Version 1)
Quarter: 2021Q1

REPORT INFORMATION
  Report Type: Spontaneous
  Country: US (occurrence: US)
  Receive Date: 20210216
  Receipt Date: 20210216
  Transmission Date: 20210420
  Serious: Yes (Other)
  Sender: FDA-Public Use
  Company Number: US-INSUD PHARMA-2102US00159

PATIENT

DRUGS (2)
  1. NUVESSA [Suspect]
     Active Substance: METRONIDAZOLE
     Indication: BACTERIAL VAGINOSIS
     Dosage: UNKNOWN
     Route: 065
  2. SULFAMETHOXAZOLE AND TRIMETHOPRIM [Suspect]
     Active Substance: SULFAMETHOXAZOLE\TRIMETHOPRIM
     Indication: URINARY TRACT INFECTION

REACTIONS (9)
  - Palpable purpura [Recovering/Resolving]
  - Generalised oedema [Recovering/Resolving]
  - Abdominal pain [Recovered/Resolved]
  - Henoch-Schonlein purpura [Recovering/Resolving]
  - Hypersensitivity vasculitis [Recovering/Resolving]
  - Glomerulonephritis proliferative [Recovering/Resolving]
  - Proteinuria [Recovering/Resolving]
  - Hypoalbuminaemia [Recovering/Resolving]
  - Nephrotic syndrome [Recovering/Resolving]
